FAERS Safety Report 8951207 (Version 1)
Quarter: 2012Q4

REPORT INFORMATION
  Report Type: Spontaneous
  Country: US (occurrence: None)
  Receive Date: 20121116
  Receipt Date: 20121116
  Transmission Date: 20130627
  Serious: Yes (Hospitalization)
  Sender: FDA-Public Use
  Company Number: 2012033926

PATIENT
  Sex: Female
  Weight: 90.72 kg

DRUGS (6)
  1. BERINERT [Suspect]
     Indication: HEREDITARY ANGIOEDEMA
     Dosage: 1x4 days 4 mL per minute)
     Route: 040
  2. HEPARIN (HEPARIN) [Concomitant]
  3. SALINE (SODIUM CHLORIDE) [Concomitant]
  4. EPI-PEN (EPINEPHRINE HYDROCHLORIDE) [Concomitant]
  5. MULTIVITAMIN (DAILY MULTIVITAMIN) [Concomitant]
  6. CINRYZE (COMPLEMENT C1 ESTERASE INHIBITOR) [Concomitant]

REACTIONS (3)
  - Angioedema [None]
  - Impaired work ability [None]
  - Device occlusion [None]
